FAERS Safety Report 22018103 (Version 1)
Quarter: 2023Q1

REPORT INFORMATION
  Report Type: Spontaneous
  Country: CO (occurrence: CO)
  Receive Date: 20230221
  Receipt Date: 20230221
  Transmission Date: 20230418
  Serious: Yes (Other)
  Sender: FDA-Public Use
  Company Number: CO-VERTEX PHARMACEUTICALS-2022-014564

PATIENT
  Sex: Male
  Weight: 52 kg

DRUGS (5)
  1. KALYDECO [Suspect]
     Active Substance: IVACAFTOR
     Indication: Cystic fibrosis
     Dosage: 150 MG, BID (FREQUENCY: 12 HOURS)
     Route: 048
  2. KALYDECO [Suspect]
     Active Substance: IVACAFTOR
     Dosage: 150 MG, QD (24 HOURS)
     Route: 048
     Dates: start: 20220611, end: 20220922
  3. KALYDECO [Suspect]
     Active Substance: IVACAFTOR
     Dosage: 150 MG, QD  (24 HOURS)
     Route: 048
     Dates: start: 20221126, end: 20230125
  4. CREON [Concomitant]
     Active Substance: PANCRELIPASE AMYLASE\PANCRELIPASE LIPASE\PANCRELIPASE PROTEASE
     Indication: Cystic fibrosis
     Dosage: UNK, QD
     Route: 048
  5. BUDESONIDE [Concomitant]
     Active Substance: BUDESONIDE
     Indication: Cystic fibrosis
     Dosage: 5 MG, QD

REACTIONS (12)
  - Infective pulmonary exacerbation of cystic fibrosis [Recovering/Resolving]
  - Productive cough [Recovering/Resolving]
  - Sputum discoloured [Recovering/Resolving]
  - Rhinorrhoea [Recovering/Resolving]
  - Nasal turbinate hypertrophy [Recovering/Resolving]
  - Rales [Unknown]
  - Wheezing [Unknown]
  - Haemorrhoids [Recovering/Resolving]
  - Gastritis [Unknown]
  - Staphylococcal infection [Not Recovered/Not Resolved]
  - Therapy interrupted [Not Recovered/Not Resolved]
  - Product supply issue [Not Recovered/Not Resolved]

NARRATIVE: CASE EVENT DATE: 20220101
